FAERS Safety Report 7317531-7 (Version None)
Quarter: 2011Q1

REPORT INFORMATION
  Report Type: 
  Country: None (occurrence: None)
  Receive Date: 20110226
  Receipt Date: 20101115
  Transmission Date: 20110831
  Serious: No
  Sender: FDA-Public Use
  Company Number: US-ALLERGAN-1014738US

PATIENT
  Age: 42 Year
  Sex: Male

DRUGS (1)
  1. BOTOX COSMETIC [Suspect]
     Indication: SKIN WRINKLING
     Dosage: 30 UNITS, SINGLE
     Route: 030
     Dates: start: 20101022, end: 20101022

REACTIONS (6)
  - EYELID PTOSIS [None]
  - EYELID OEDEMA [None]
  - SWELLING FACE [None]
  - NAUSEA [None]
  - EYE SWELLING [None]
  - INJECTION SITE PAIN [None]
